FAERS Safety Report 10175451 (Version 2)
Quarter: 2014Q2

REPORT INFORMATION
  Report Type: Spontaneous
  Country: NL (occurrence: NL)
  Receive Date: 20140515
  Receipt Date: 20140527
  Transmission Date: 20141212
  Serious: Yes (Death, Hospitalization)
  Sender: FDA-Public Use
  Company Number: NL-B.I. PHARMACEUTICALS,INC./RIDGEFIELD-2014-BI-21589NL

PATIENT
  Age: 58 Year
  Sex: Male

DRUGS (12)
  1. PRADAXA [Suspect]
     Indication: ATRIAL FIBRILLATION
     Dosage: 220 MG
     Route: 048
     Dates: start: 20131106
  2. PRADAXA [Suspect]
     Indication: CEREBRAL INFARCTION
  3. DIGOXINE [Concomitant]
     Route: 065
  4. ISOSORBIDEMONONITRAAT [Concomitant]
     Route: 065
  5. BUMETAMIDE [Concomitant]
     Route: 065
  6. ROSUVASTATINE [Concomitant]
     Route: 065
  7. EPLERENON [Concomitant]
     Route: 065
  8. LACTULOSE [Concomitant]
     Route: 065
  9. QUINAPRIL [Concomitant]
     Route: 065
  10. CARVEDILOL [Concomitant]
     Route: 065
  11. PANTOZOL [Concomitant]
     Route: 065
  12. INSULINE [Concomitant]
     Route: 065

REACTIONS (1)
  - Death [Fatal]
